FAERS Safety Report 20073508 (Version 1)
Quarter: 2021Q4

REPORT INFORMATION
  Report Type: Spontaneous
  Country: TW (occurrence: TW)
  Receive Date: 20211116
  Receipt Date: 20211116
  Transmission Date: 20220304
  Serious: Yes (Other)
  Sender: FDA-Public Use
  Company Number: TW-BAYER-2021A248903

PATIENT

DRUGS (1)
  1. STIVARGA [Suspect]
     Active Substance: REGORAFENIB
     Indication: Hepatocellular carcinoma
     Route: 048

REACTIONS (1)
  - Hepatocellular carcinoma [None]
